FAERS Safety Report 18242814 (Version 2)
Quarter: 2020Q4

REPORT INFORMATION
  Report Type: Spontaneous
  Country: US (occurrence: US)
  Receive Date: 20200908
  Receipt Date: 20201103
  Transmission Date: 20210113
  Serious: Yes (Other)
  Sender: FDA-Public Use
  Company Number: US-BAYER-2020-181503

PATIENT
  Age: 23 Year
  Sex: Female

DRUGS (1)
  1. SKYLA [Suspect]
     Active Substance: LEVONORGESTREL
     Indication: CONTRACEPTION
     Dosage: 14 ?G PER DAY CONTINOUSLY
     Route: 015
     Dates: start: 20200821, end: 20200821

REACTIONS (3)
  - Post procedural haemorrhage [Recovered/Resolved]
  - Complication of device insertion [None]
  - Retained products of conception [None]

NARRATIVE: CASE EVENT DATE: 20200821
